FAERS Safety Report 11866721 (Version 2)
Quarter: 2016Q2

REPORT INFORMATION
  Report Type: Spontaneous
  Country: US (occurrence: US)
  Receive Date: 20151224
  Receipt Date: 20160420
  Transmission Date: 20160815
  Serious: Yes (Hospitalization, Other)
  Sender: FDA-Public Use
  Company Number: PHEH2015US026273

PATIENT
  Age: 37 Year
  Sex: Male

DRUGS (8)
  1. TERAZOSIN HCL [Concomitant]
     Active Substance: TERAZOSIN HYDROCHLORIDE
     Indication: PRODUCT USED FOR UNKNOWN INDICATION
     Dosage: 5 MG, QD
     Route: 065
  2. CIPROFLOXACIN HYDROCHLORIDE. [Concomitant]
     Active Substance: CIPROFLOXACIN HYDROCHLORIDE
     Indication: PRODUCT USED FOR UNKNOWN INDICATION
     Dosage: 500 MG, PRN
     Route: 065
  3. GABAPENTIN. [Concomitant]
     Active Substance: GABAPENTIN
     Indication: PRODUCT USED FOR UNKNOWN INDICATION
     Dosage: 300 MG, BID
     Route: 065
  4. VITAMIN D [Concomitant]
     Active Substance: CHOLECALCIFEROL
     Indication: PRODUCT USED FOR UNKNOWN INDICATION
     Dosage: 1 DF, QW
     Route: 065
  5. GILENYA [Suspect]
     Active Substance: FINGOLIMOD HYDROCHLORIDE
     Indication: MULTIPLE SCLEROSIS
     Dosage: 0.5 MG, QD
     Route: 048
     Dates: start: 201502
  6. TIZANIDINE HCL [Concomitant]
     Active Substance: TIZANIDINE HYDROCHLORIDE
     Indication: PRODUCT USED FOR UNKNOWN INDICATION
     Dosage: 4 MG, PRN
     Route: 065
  7. LOSARTAN POTASSIUM. [Concomitant]
     Active Substance: LOSARTAN POTASSIUM
     Indication: PRODUCT USED FOR UNKNOWN INDICATION
     Dosage: 100 MG, QD
     Route: 065
  8. OCRELIZUMAB [Concomitant]
     Active Substance: OCRELIZUMAB
     Indication: SECONDARY PROGRESSIVE MULTIPLE SCLEROSIS
     Route: 065

REACTIONS (29)
  - Optic atrophy [Unknown]
  - Urinary tract infection [Unknown]
  - Night sweats [Unknown]
  - Paraplegia [Unknown]
  - Paralysis [Unknown]
  - Hypoaesthesia [Unknown]
  - Temperature intolerance [Unknown]
  - Reflexes abnormal [Unknown]
  - Hypotension [Unknown]
  - Hypoaesthesia oral [Unknown]
  - Sensory disturbance [Unknown]
  - Tremor [Unknown]
  - Spinal osteoarthritis [Unknown]
  - Sensory loss [Unknown]
  - Abdominal pain [Unknown]
  - White blood cell count decreased [Recovered/Resolved]
  - Pyrexia [Recovering/Resolving]
  - Decubitus ulcer [Unknown]
  - Anal incontinence [Unknown]
  - Urinary incontinence [Unknown]
  - Anxiety [Unknown]
  - Lumbar radiculopathy [Unknown]
  - Myelopathy [Unknown]
  - Motor dysfunction [Unknown]
  - Cerebellar ataxia [Unknown]
  - Lymphopenia [Unknown]
  - Central nervous system lesion [Unknown]
  - Osteoarthritis [Unknown]
  - Liver function test increased [Recovering/Resolving]

NARRATIVE: CASE EVENT DATE: 20150917
